FAERS Safety Report 9708804 (Version 3)
Quarter: 2013Q4

REPORT INFORMATION
  Report Type: Spontaneous
  Country: US (occurrence: US)
  Receive Date: 20131125
  Receipt Date: 20131227
  Transmission Date: 20140711
  Serious: Yes (Hospitalization, Disabling, Other)
  Sender: FDA-Public Use
  Company Number: US-009507513-1205USA02813

PATIENT
  Sex: Female

DRUGS (8)
  1. FOSAMAX [Suspect]
     Indication: OSTEOPOROSIS
     Dosage: UNK
     Route: 048
     Dates: start: 1998, end: 200610
  2. FOSAMAX [Suspect]
     Dosage: 70 MG, QW
     Route: 048
  3. FOSAMAX [Suspect]
     Route: 048
  4. VITAMINS (UNSPECIFIED) [Concomitant]
     Dosage: 1 DF, QD
     Route: 048
     Dates: start: 1960
  5. NEXIUM [Concomitant]
     Dosage: UNK
     Dates: start: 1993, end: 2006
  6. HORMONES (UNSPECIFIED) [Concomitant]
     Dosage: UNK
     Dates: start: 1985, end: 2011
  7. CALCIUM (UNSPECIFIED) [Concomitant]
     Indication: OSTEOPOROSIS
  8. VITAMIN D (UNSPECIFIED) [Concomitant]
     Indication: OSTEOPOROSIS

REACTIONS (28)
  - Femur fracture [Unknown]
  - Open reduction of fracture [Unknown]
  - Osteoporosis [Unknown]
  - Multiple fractures [Unknown]
  - Spinal operation [Unknown]
  - Peroneal nerve palsy [Unknown]
  - Low turnover osteopathy [Unknown]
  - Spinal operation [Unknown]
  - Fall [Unknown]
  - Lumbar vertebral fracture [Unknown]
  - Anxiety [Unknown]
  - Calcium deficiency [Unknown]
  - Vitamin D deficiency [Unknown]
  - Wrist fracture [Unknown]
  - Fractured sacrum [Unknown]
  - Spinal fracture [Unknown]
  - Fall [Unknown]
  - Spondylolisthesis [Unknown]
  - Hysterectomy [Unknown]
  - Coeliac disease [Unknown]
  - Radiculopathy [Unknown]
  - Patella fracture [Unknown]
  - Spinal compression fracture [Unknown]
  - Hypothyroidism [Unknown]
  - Nephrolithiasis [Unknown]
  - Spondylolisthesis [Unknown]
  - Lumbar spinal stenosis [Unknown]
  - Gastrooesophageal reflux disease [Unknown]
